FAERS Safety Report 10789660 (Version 1)
Quarter: 2015Q1

REPORT INFORMATION
  Report Type: Spontaneous
  Country: US (occurrence: None)
  Receive Date: 20150211
  Receipt Date: 20150211
  Transmission Date: 20150721
  Serious: No
  Sender: FDA-Public Use
  Company Number: None

PATIENT
  Age: 45 Year
  Sex: Female
  Weight: 51.26 kg

DRUGS (2)
  1. TIROSINT 100 MG [Concomitant]
  2. TIROSINT [Suspect]
     Active Substance: LEVOTHYROXINE SODIUM
     Indication: HYPOTHYROIDISM
     Dosage: 1 PILL ONCE DAILY TAKEN BY MOUTH
     Dates: start: 20141001, end: 20150210

REACTIONS (4)
  - Palpitations [None]
  - Arthralgia [None]
  - Heart rate increased [None]
  - Joint swelling [None]

NARRATIVE: CASE EVENT DATE: 20150210
